FAERS Safety Report 8446088-2 (Version None)
Quarter: 2012Q2

REPORT INFORMATION
  Report Type: 
  Country: None (occurrence: None)
  Receive Date: 20120618
  Receipt Date: 20120613
  Transmission Date: 20120825
  Serious: No
  Sender: FDA-Public Use
  Company Number: US-PFIZER INC-2012142777

PATIENT
  Sex: Female
  Weight: 99.32 kg

DRUGS (3)
  1. LISINOPRIL [Concomitant]
     Indication: HYPERTENSION
     Dosage: UNK
  2. EFFEXOR XR [Suspect]
     Indication: STRESS
     Dosage: 150 MG, 1X/DAY
     Route: 048
     Dates: start: 20040101
  3. EFFEXOR XR [Suspect]
     Dosage: UNK
     Route: 048

REACTIONS (3)
  - MEMORY IMPAIRMENT [None]
  - FEELING HOT [None]
  - HOT FLUSH [None]
